FAERS Safety Report 12967478 (Version 3)
Quarter: 2017Q1

REPORT INFORMATION
  Report Type: Spontaneous
  Country: JP (occurrence: JP)
  Receive Date: 20161123
  Receipt Date: 20170202
  Transmission Date: 20170428
  Serious: Yes (Death, Other)
  Sender: FDA-Public Use
  Company Number: JP-009507513-1611JPN009809

PATIENT
  Age: 88 Year
  Sex: Female
  Weight: 44.5 kg

DRUGS (10)
  1. REBETOL [Suspect]
     Active Substance: RIBAVIRIN
     Dosage: 200 MG, UNK
     Route: 048
     Dates: start: 20161012
  2. BIODIASTASE [Concomitant]
     Dosage: 3 DF, UNK
     Route: 048
  3. URSO [Concomitant]
     Active Substance: URSODIOL
     Dosage: 150 MG, UNK
     Route: 048
  4. ULCERLMIN [Concomitant]
     Active Substance: SUCRALFATE
     Dosage: UNK
     Route: 048
  5. METHAPHYLLIN [Concomitant]
     Dosage: 2 G, UNK
     Route: 048
  6. SOVALDI [Suspect]
     Active Substance: SOFOSBUVIR
     Indication: HEPATITIS VIRAL TEST POSITIVE
     Dosage: 1 DF, QD
     Route: 048
     Dates: start: 20161012
  7. HALCION [Concomitant]
     Active Substance: TRIAZOLAM
     Dosage: 0.25 MG, UNK
     Route: 048
  8. FRANDOL [Concomitant]
     Active Substance: ISOSORBIDE DINITRATE
     Dosage: UNK
  9. ISALON [Concomitant]
     Active Substance: UNSPECIFIED INGREDIENT
     Dosage: 300 MG, UNK
     Route: 048
  10. AVAPRO [Concomitant]
     Active Substance: IRBESARTAN
     Dosage: 100 MG, UNK
     Route: 048

REACTIONS (1)
  - Arrhythmia [Fatal]

NARRATIVE: CASE EVENT DATE: 20161115
